FAERS Safety Report 10342598 (Version 1)
Quarter: 2014Q3

REPORT INFORMATION
  Report Type: Spontaneous
  Country: US (occurrence: US)
  Receive Date: 20140725
  Receipt Date: 20140725
  Transmission Date: 20150326
  Serious: Yes (Other)
  Sender: FDA-Public Use
  Company Number: US-BAYER-2014-106531

PATIENT
  Age: 54 Year
  Sex: Female

DRUGS (1)
  1. CIPRO [Suspect]
     Active Substance: CIPROFLOXACIN HYDROCHLORIDE
     Indication: DIVERTICULITIS
     Dosage: ONE TABLET 3 OR 2 TIMES A DAY
     Dates: start: 20140430, end: 20140503

REACTIONS (1)
  - Tendonitis [None]

NARRATIVE: CASE EVENT DATE: 20140503
